FAERS Safety Report 17160648 (Version 2)
Quarter: 2019Q4

REPORT INFORMATION
  Report Type: Spontaneous
  Country: PT (occurrence: PT)
  Receive Date: 20191216
  Receipt Date: 20191223
  Transmission Date: 20200122
  Serious: Yes (Death)
  Sender: FDA-Public Use
  Company Number: PT-UNITED THERAPEUTICS-UNT-2019-020794

PATIENT

DRUGS (1)
  1. REMODULIN [Suspect]
     Active Substance: TREPROSTINIL
     Indication: PULMONARY ARTERIAL PRESSURE
     Dosage: 0.056 ?G/KG, CONTINUING
     Route: 058
     Dates: end: 20191210

REACTIONS (1)
  - Death [Fatal]

NARRATIVE: CASE EVENT DATE: 20191210
